FAERS Safety Report 24206674 (Version 1)
Quarter: 2024Q3

REPORT INFORMATION
  Report Type: Spontaneous
  Country: KR (occurrence: KR)
  Receive Date: 20240813
  Receipt Date: 20240813
  Transmission Date: 20241016
  Serious: Yes (Death)
  Sender: JAZZ
  Company Number: KR-JAZZ PHARMACEUTICALS-2023-KR-024352

PATIENT

DRUGS (1)
  1. VYXEOS [Suspect]
     Active Substance: CYTARABINE\DAUNORUBICIN
     Indication: Product used for unknown indication
     Dosage: FIRST INDUCTION CYCLE

REACTIONS (1)
  - Infection [Fatal]
